FAERS Safety Report 9899577 (Version 2)
Quarter: 2014Q3

REPORT INFORMATION
  Report Type: Spontaneous
  Country: US (occurrence: US)
  Receive Date: 20140214
  Receipt Date: 20140815
  Transmission Date: 20150326
  Serious: Yes (Hospitalization, Other)
  Sender: FDA-Public Use
  Company Number: US-009507513-1402USA006507

PATIENT
  Sex: Female
  Weight: 88.63 kg

DRUGS (2)
  1. NUVARING [Suspect]
     Active Substance: ETHINYL ESTRADIOL\ETONOGESTREL
     Indication: UTERINE HAEMORRHAGE
  2. NUVARING [Suspect]
     Active Substance: ETHINYL ESTRADIOL\ETONOGESTREL
     Indication: CONTRACEPTION
     Dosage: UNK
     Route: 067
     Dates: start: 201204, end: 201210

REACTIONS (6)
  - Iron deficiency anaemia [Unknown]
  - Pulmonary embolism [Unknown]
  - Deep vein thrombosis [Unknown]
  - Microcytic anaemia [Unknown]
  - Left ventricular dysfunction [Unknown]
  - Endometriosis [Unknown]

NARRATIVE: CASE EVENT DATE: 20120929
